FAERS Safety Report 12382023 (Version 4)
Quarter: 2016Q3

REPORT INFORMATION
  Report Type: Spontaneous
  Country: IE (occurrence: IE)
  Receive Date: 20160518
  Receipt Date: 20160909
  Transmission Date: 20161109
  Serious: Yes (Disabling, Other)
  Sender: FDA-Public Use
  Company Number: IE-REGENERON PHARMACEUTICALS, INC.-2016-17126

PATIENT

DRUGS (5)
  1. EYLEA [Suspect]
     Active Substance: AFLIBERCEPT
     Indication: NEOVASCULAR AGE-RELATED MACULAR DEGENERATION
     Dosage: LEFT EYE
     Route: 031
     Dates: start: 20160310, end: 20160310
  2. DICLAC                             /00372302/ [Interacting]
     Active Substance: DICLOFENAC POTASSIUM
     Indication: PRODUCT USED FOR UNKNOWN INDICATION
  3. EYLEA [Interacting]
     Active Substance: AFLIBERCEPT
     Dosage: RIGHT EYE
     Route: 031
     Dates: start: 20160315, end: 20160315
  4. EYLEA [Interacting]
     Active Substance: AFLIBERCEPT
     Dosage: LEFT EYE
     Route: 031
     Dates: start: 20160412, end: 20160412
  5. EYLEA [Interacting]
     Active Substance: AFLIBERCEPT
     Dosage: RIGHT EYE
     Route: 031
     Dates: start: 20160419, end: 20160419

REACTIONS (4)
  - Drug interaction [Unknown]
  - Erythema multiforme [Recovered/Resolved with Sequelae]
  - Blood pressure increased [Unknown]
  - Serum sickness [Recovered/Resolved with Sequelae]

NARRATIVE: CASE EVENT DATE: 20160413
